FAERS Safety Report 8116637-2 (Version None)
Quarter: 2012Q1

REPORT INFORMATION
  Report Type: 
  Country: None (occurrence: None)
  Receive Date: 20120206
  Receipt Date: 20120125
  Transmission Date: 20120608
  Serious: Yes (Other)
  Sender: FDA-Public Use
  Company Number: PHHY2012JP006760

PATIENT
  Age: 83 Year
  Sex: Female

DRUGS (5)
  1. LIPITOR [Suspect]
     Dosage: 10 MG
     Route: 048
     Dates: end: 20120110
  2. THEO-DUR [Suspect]
     Dosage: 400 MG, QD
     Route: 048
  3. MUCODYNE [Suspect]
     Dosage: 1000 MG, QD
     Route: 048
  4. ADVAIR DISKUS 100/50 [Concomitant]
     Dosage: UNK
  5. ONBREZ [Suspect]
     Indication: CHRONIC OBSTRUCTIVE PULMONARY DISEASE
     Dosage: 150 UG/DAY
     Dates: start: 20111207, end: 20111217

REACTIONS (4)
  - ASPARTATE AMINOTRANSFERASE INCREASED [None]
  - HEPATIC FUNCTION ABNORMAL [None]
  - BLOOD LACTATE DEHYDROGENASE INCREASED [None]
  - ALANINE AMINOTRANSFERASE INCREASED [None]
